FAERS Safety Report 12173003 (Version 4)
Quarter: 2016Q2

REPORT INFORMATION
  Report Type: Report from Study
  Country: JP (occurrence: JP)
  Receive Date: 20160311
  Receipt Date: 20160531
  Transmission Date: 20160815
  Serious: Yes (Hospitalization)
  Sender: FDA-Public Use
  Company Number: JP-PFIZER INC-2016143577

PATIENT
  Age: 50 Year
  Sex: Female
  Weight: 40 kg

DRUGS (7)
  1. MERCAZOLE [Concomitant]
     Active Substance: CARBIMAZOLE
     Route: 048
  2. XELJANZ [Suspect]
     Active Substance: TOFACITINIB CITRATE
     Dosage: 5 MG, 1X/DAY
     Route: 048
     Dates: start: 20150917, end: 20160304
  3. METHOTREXATE [Concomitant]
     Active Substance: METHOTREXATE
     Dosage: 12 MG, WEEKLY
     Route: 048
     Dates: start: 20130425
  4. TAKEPRON [Concomitant]
     Active Substance: LANSOPRAZOLE
     Route: 048
  5. BONOTEO [Concomitant]
     Active Substance: MINODRONIC ACID
     Route: 048
  6. XELJANZ [Suspect]
     Active Substance: TOFACITINIB CITRATE
     Indication: RHEUMATOID ARTHRITIS
     Dosage: 5 MG, 2X/DAY
     Route: 048
     Dates: start: 20150723, end: 20150916
  7. EDIROL [Concomitant]
     Active Substance: ELDECALCITOL
     Route: 048

REACTIONS (1)
  - Cervical dysplasia [Not Recovered/Not Resolved]

NARRATIVE: CASE EVENT DATE: 20160216
